FAERS Safety Report 20388539 (Version 1)
Quarter: 2022Q1

REPORT INFORMATION
  Report Type: Spontaneous
  Country: CA (occurrence: CA)
  Receive Date: 20220128
  Receipt Date: 20220128
  Transmission Date: 20220423
  Serious: Yes (Other)
  Sender: FDA-Public Use
  Company Number: CA-JNJFOC-20220141985

PATIENT
  Age: 58 Year
  Sex: Male
  Weight: 83 kg

DRUGS (11)
  1. REMICADE [Suspect]
     Active Substance: INFLIXIMAB
     Indication: Colitis ulcerative
     Route: 042
  2. ATORVASTATIN [Concomitant]
     Active Substance: ATORVASTATIN
     Route: 048
  3. CIPROFLOXACIN [Concomitant]
     Active Substance: CIPROFLOXACIN
  4. CLONAZEPAM [Concomitant]
     Active Substance: CLONAZEPAM
     Route: 060
  5. LIDOCAINE HYDROCHLORIDE;POLYMYXIN B SULFATE [Concomitant]
  6. METOCLOPRAMIDE [Concomitant]
     Active Substance: METOCLOPRAMIDE
  7. METHYLPREDNISOLONE [Concomitant]
     Active Substance: METHYLPREDNISOLONE
     Route: 042
  8. MONTELUKAST [Concomitant]
     Active Substance: MONTELUKAST SODIUM
     Route: 048
  9. METRONIDAZOLE [Concomitant]
     Active Substance: METRONIDAZOLE
  10. PREDNISONE [Concomitant]
     Active Substance: PREDNISONE
  11. TOPIRAMATE [Concomitant]
     Active Substance: TOPIRAMATE

REACTIONS (23)
  - Arthritis [Not Recovered/Not Resolved]
  - Decreased appetite [Not Recovered/Not Resolved]
  - Enuresis [Not Recovered/Not Resolved]
  - Gout [Not Recovered/Not Resolved]
  - Inflammation [Not Recovered/Not Resolved]
  - Intentional product use issue [Not Recovered/Not Resolved]
  - Memory impairment [Not Recovered/Not Resolved]
  - Migraine [Not Recovered/Not Resolved]
  - Muscle twitching [Not Recovered/Not Resolved]
  - Orthopnoea [Not Recovered/Not Resolved]
  - Respiratory rate decreased [Not Recovered/Not Resolved]
  - Wound drainage [Not Recovered/Not Resolved]
  - Joint swelling [Not Recovered/Not Resolved]
  - Cough [Not Recovered/Not Resolved]
  - Ear infection [Not Recovered/Not Resolved]
  - Nausea [Not Recovered/Not Resolved]
  - Abdominal discomfort [Not Recovered/Not Resolved]
  - Orthostatic hypertension [Not Recovered/Not Resolved]
  - Arthritis infective [Not Recovered/Not Resolved]
  - Hyperhidrosis [Not Recovered/Not Resolved]
  - Erythema [Not Recovered/Not Resolved]
  - Inappropriate schedule of product administration [Not Recovered/Not Resolved]
  - Off label use [Not Recovered/Not Resolved]
